FAERS Safety Report 22296461 (Version 2)
Quarter: 2023Q2

REPORT INFORMATION
  Report Type: Report from Study
  Country: CA (occurrence: None)
  Receive Date: 20230508
  Receipt Date: 20230511
  Transmission Date: 20230722
  Serious: Yes (Other)
  Sender: FDA-Public Use
  Company Number: CA-Merck Healthcare KGaA-9400245

PATIENT
  Sex: Female

DRUGS (3)
  1. MAVENCLAD [Suspect]
     Active Substance: CLADRIBINE
     Indication: Multiple sclerosis
     Dosage: YEAR ONE THERAPY
     Route: 048
     Dates: start: 20220328
  2. MAVENCLAD [Suspect]
     Active Substance: CLADRIBINE
     Dosage: YEAR TWO WEEK ONE THERAPY
     Route: 048
  3. MAVENCLAD [Suspect]
     Active Substance: CLADRIBINE
     Dosage: YEAR TWO WEEK FIVE THERAPY
     Route: 048
     Dates: end: 20230428

REACTIONS (1)
  - Angina pectoris [Recovered/Resolved]
